FAERS Safety Report 18390195 (Version 2)
Quarter: 2020Q4

REPORT INFORMATION
  Report Type: Report from Study
  Country: US (occurrence: US)
  Receive Date: 20201016
  Receipt Date: 20201118
  Transmission Date: 20210114
  Serious: Yes (Other)
  Sender: FDA-Public Use
  Company Number: US-SAREPTA THERAPEUTICS INC.-SRP2020-000919

PATIENT
  Age: 7 Year
  Sex: Male

DRUGS (2)
  1. EMFLAZA [Concomitant]
     Active Substance: DEFLAZACORT
     Indication: DUCHENNE MUSCULAR DYSTROPHY
     Dosage: 20.7 MILLIGRAM, QD
     Route: 048
     Dates: start: 20190301
  2. ETEPLIRSEN [Suspect]
     Active Substance: ETEPLIRSEN
     Indication: DUCHENNE MUSCULAR DYSTROPHY
     Dosage: 30 MILLIGRAM/KILOGRAM, WEEKLY
     Route: 042
     Dates: start: 20191119, end: 202010

REACTIONS (6)
  - Chest discomfort [Recovered/Resolved]
  - Vomiting [Recovered/Resolved]
  - Chest pain [Recovered/Resolved]
  - Speech disorder [Recovered/Resolved]
  - Cyanosis [Recovered/Resolved]
  - Product dose omission issue [Unknown]

NARRATIVE: CASE EVENT DATE: 20201008
